FAERS Safety Report 14830275 (Version 2)
Quarter: 2018Q2

REPORT INFORMATION
  Report Type: Report from Study
  Country: JP (occurrence: JP)
  Receive Date: 20180430
  Receipt Date: 20180531
  Transmission Date: 20180711
  Serious: Yes (Hospitalization, Other)
  Sender: FDA-Public Use
  Company Number: JP-ALXN-A201609429AA

PATIENT
  Age: 4 Year
  Sex: Male

DRUGS (15)
  1. ADEROXAL [Concomitant]
     Active Substance: PYRIDOXAL PHOSPHATE
     Indication: HYPOPHOSPHATASIA
     Dosage: 0.854 G, TID
     Route: 048
  2. HYALEIN [Concomitant]
     Active Substance: HYALURONATE SODIUM
     Indication: PROPHYLAXIS
     Dosage: SEVERAL DROPS, 2-4TIMES DAILY
     Route: 047
     Dates: start: 20161221
  3. BIOFERMIN                          /01617201/ [Concomitant]
     Active Substance: BACILLUS SUBTILIS\LACTOBACILLUS ACIDOPHILUS\STREPTOCOCCUS FAECAIS
     Indication: HYPOPHOSPHATASIA
     Dosage: 0.3 G, TID
     Route: 048
  4. GLUCONSAN K [Concomitant]
     Active Substance: POTASSIUM GLUCONATE
     Dosage: 1.6 G, TID
     Route: 048
     Dates: start: 20161117
  5. DANTRIUM [Concomitant]
     Active Substance: DANTROLENE SODIUM
     Indication: HYPOPHOSPHATASIA
     Dosage: 5 MG, TID
     Route: 048
  6. PENLES [Concomitant]
     Active Substance: LIDOCAINE
     Indication: PROPHYLAXIS
     Dosage: 1 DF, TIW
     Route: 062
     Dates: end: 20170706
  7. PHENOBAL                           /00023201/ [Concomitant]
     Active Substance: PHENOBARBITAL
     Indication: HYPOPHOSPHATASIA
     Dosage: 0.3 G, BID
     Route: 048
  8. THYRADIN-S [Concomitant]
     Active Substance: LEVOTHYROXINE
     Indication: HYPOPHOSPHATASIA
     Dosage: 0.3 G, QD
     Route: 048
  9. L CARTIN FF [Concomitant]
     Active Substance: LEVOCARNITINE
     Indication: HYPOPHOSPHATASIA
     Dosage: 1.5 ML, TID
     Route: 048
  10. HIRUDOID                           /00723701/ [Concomitant]
     Active Substance: PENTOSAN POLYSULFATE SODIUM
     Indication: PROPHYLAXIS
     Dosage: 1-2 G, QD
     Route: 062
     Dates: start: 20161118
  11. STRENSIQ [Suspect]
     Active Substance: ASFOTASE ALFA
     Indication: HYPOPHOSPHATASIA
     Dosage: 2 MG/KG, TIW
     Route: 058
     Dates: start: 20150925, end: 20170404
  12. GLUCONSAN K [Concomitant]
     Active Substance: POTASSIUM GLUCONATE
     Indication: HYPOPHOSPHATASIA
     Dosage: 1.5 G, TID
     Route: 048
     Dates: end: 20161116
  13. PROPETO [Concomitant]
     Indication: PROPHYLAXIS
     Dosage: 1-2 G, QD
     Route: 062
     Dates: start: 20161117, end: 20170102
  14. EMLA [Concomitant]
     Active Substance: LIDOCAINE\PRILOCAINE
     Indication: PROPHYLAXIS
     Dosage: 0.1 G, TIW
     Route: 062
     Dates: start: 20170707
  15. STRENSIQ [Suspect]
     Active Substance: ASFOTASE ALFA
     Dosage: 2 MG/KG, TIW
     Route: 058
     Dates: start: 20170407

REACTIONS (18)
  - Seizure [Recovered/Resolved]
  - Urinary tract infection [Recovered/Resolved]
  - Injection site induration [Recovered/Resolved]
  - Heart rate decreased [Recovered/Resolved]
  - White blood cell count increased [Recovered/Resolved]
  - Anal abscess [Recovering/Resolving]
  - Anal abscess [Recovering/Resolving]
  - Injection site induration [Recovered/Resolved]
  - Seizure [Recovered/Resolved]
  - Oxygen saturation decreased [Recovered/Resolved]
  - Heart rate decreased [Recovered/Resolved]
  - Seizure [Recovered/Resolved]
  - Injection site pain [Recovered/Resolved]
  - Seizure [Recovered/Resolved]
  - Seizure [Recovered/Resolved]
  - C-reactive protein increased [Recovered/Resolved]
  - Pneumonia [Recovered/Resolved]
  - Pneumonia [Recovered/Resolved]

NARRATIVE: CASE EVENT DATE: 20161005
